FAERS Safety Report 10621554 (Version 1)
Quarter: 2014Q4

REPORT INFORMATION
  Report Type: Spontaneous
  Country: US (occurrence: None)
  Receive Date: 20141128
  Receipt Date: 20141128
  Transmission Date: 20150529
  Serious: Yes (Hospitalization)
  Sender: FDA-Public Use
  Company Number: US-H14001-14-01670

PATIENT
  Age: 17 Year
  Sex: Female

DRUGS (3)
  1. CIPROFLOXACIN. [Suspect]
     Active Substance: CIPROFLOXACIN
     Indication: COUGH
  2. CIPROFLOXACIN. [Suspect]
     Active Substance: CIPROFLOXACIN
     Indication: PYREXIA
  3. CIPROFLOXACIN. [Suspect]
     Active Substance: CIPROFLOXACIN
     Indication: OROPHARYNGEAL PAIN

REACTIONS (12)
  - Transaminases increased [None]
  - Musculoskeletal stiffness [None]
  - Pallor [None]
  - Compartment syndrome [None]
  - Pain in extremity [None]
  - Hypoaesthesia [None]
  - Blood creatine phosphokinase increased [None]
  - Neuralgia [None]
  - Peripheral coldness [None]
  - Tendon disorder [None]
  - Skin discolouration [None]
  - Peripheral swelling [None]
